FAERS Safety Report 9983163 (Version 1)
Quarter: 2014Q1

REPORT INFORMATION
  Report Type: Spontaneous
  Country: CA (occurrence: CA)
  Receive Date: 20140307
  Receipt Date: 20140307
  Transmission Date: 20141002
  Serious: Yes (Other)
  Sender: FDA-Public Use
  Company Number: CA-PFIZER INC-2014065280

PATIENT
  Sex: 0

DRUGS (2)
  1. ZELDOX [Suspect]
     Indication: SCHIZOAFFECTIVE DISORDER
     Dosage: UNK
  2. CHOLESTYRAMINE [Interacting]
     Dosage: UNK

REACTIONS (2)
  - Schizoaffective disorder [Not Recovered/Not Resolved]
  - Drug interaction [Not Recovered/Not Resolved]
